FAERS Safety Report 6507228-5 (Version None)
Quarter: 2009Q4

REPORT INFORMATION
  Report Type: 
  Country: None (occurrence: None)
  Receive Date: 20091221
  Receipt Date: 20091211
  Transmission Date: 20100525
  Serious: Yes (Hospitalization, Other)
  Sender: FDA-Public Use
  Company Number: PHHY2009JP46651

PATIENT
  Sex: Male

DRUGS (1)
  1. VOLTAREN [Suspect]
     Indication: PAIN
     Dosage: UNK
     Route: 054

REACTIONS (4)
  - GASTRITIS [None]
  - HERNIA [None]
  - LUMBAR SPINAL STENOSIS [None]
  - SPINAL OSTEOARTHRITIS [None]
